FAERS Safety Report 7888305 (Version 6)
Quarter: 2012Q4

REPORT INFORMATION
  Report Type: Report from Study
  Country: IN (occurrence: US)
  Receive Date: 20110406
  Receipt Date: 20121120
  Transmission Date: 20130627
  Serious: Yes (Hospitalization, Disabling, Other)
  Sender: FDA-Public Use
  Company Number: US-BRISTOL-MYERS SQUIBB COMPANY-15540776

PATIENT
  Age: 53 Year
  Sex: Male

DRUGS (14)
  1. IPILIMUMAB [Suspect]
     Indication: MALIGNANT MELANOMA
     Dosage: No of courses=3, Interrupted:29Dec2010
18nov10 306.3mg.312.9mg 09dec10.314.7mg 29Dec10
     Route: 042
     Dates: start: 20101118, end: 20101229
  2. PREDNISONE [Concomitant]
     Indication: HYPOPHYSITIS
     Dosage: 20 mg/day as of 15-Apr-2011
     Route: 048
     Dates: start: 20110120
  3. ABILIFY TABS 5 MG [Concomitant]
  4. CLONAZEPAM [Concomitant]
  5. DEXAMETHASONE [Concomitant]
     Route: 048
  6. LOVENOX [Concomitant]
     Dosage: 150mg/ml soln also taken inj 140mg.
     Route: 058
  7. GABAPENTIN [Concomitant]
     Dosage: tabs
  8. KYTRIL [Concomitant]
     Dosage: tabs bid
     Route: 048
  9. MAGNESIUM OXIDE [Concomitant]
     Dosage: 1 DF: 3 tabs once daily
  10. POTASSIUM CHLORIDE [Concomitant]
     Dosage: 1 DF: 1 tab daily
  11. PROTONIX [Concomitant]
  12. REMERON [Concomitant]
     Dosage: 1 DF: 2 tabs at bed time
  13. SENNA [Concomitant]
     Dosage: 187 mg tabs 1 as needed for bm daily
  14. SIMVASTATIN [Concomitant]

REACTIONS (4)
  - Blindness unilateral [Not Recovered/Not Resolved]
  - Optic neuritis [Recovered/Resolved with Sequelae]
  - Vision blurred [Recovered/Resolved]
  - Depression [Recovered/Resolved]
